FAERS Safety Report 6068114-0 (Version None)
Quarter: 2009Q1

REPORT INFORMATION
  Report Type: 
  Country: None (occurrence: None)
  Receive Date: 20090206
  Receipt Date: 20090127
  Transmission Date: 20090719
  Serious: Yes (Other)
  Sender: FDA-Public Use
  Company Number: FR-ABBOTT-09P-056-0500035-00

PATIENT
  Sex: Male

DRUGS (3)
  1. RITONAVIR SOFT GELATIN CAPSULES [Suspect]
     Indication: HIV INFECTION
     Dates: start: 20080116, end: 20080222
  2. REYATAZ [Suspect]
     Indication: HIV INFECTION
     Dates: start: 20080116, end: 20080222
  3. TRUVADA [Suspect]
     Indication: HIV INFECTION
     Dates: start: 20080116, end: 20080222

REACTIONS (4)
  - ALANINE AMINOTRANSFERASE INCREASED [None]
  - ASPARTATE AMINOTRANSFERASE INCREASED [None]
  - CYTOLYTIC HEPATITIS [None]
  - LYMPHOMA [None]
